FAERS Safety Report 11179233 (Version 2)
Quarter: 2015Q3

REPORT INFORMATION
  Report Type: Spontaneous
  Country: JP (occurrence: JP)
  Receive Date: 20150610
  Receipt Date: 20150716
  Transmission Date: 20151125
  Serious: Yes (Other)
  Sender: FDA-Public Use
  Company Number: ALCN2015JP003733

PATIENT
  Age: 69 Year
  Sex: Female

DRUGS (5)
  1. BESTRON [Concomitant]
     Indication: INTRAOCULAR LENS IMPLANT
     Dosage: UNK
     Route: 047
     Dates: start: 20150413
  2. VEGAMOX OPHTHALMIC SOLUTION 0.5% [Suspect]
     Active Substance: MOXIFLOXACIN HYDROCHLORIDE
     Indication: INTRAOCULAR LENS IMPLANT
     Dosage: UNK
     Route: 047
     Dates: start: 20150410, end: 20150413
  3. PA IODO [Concomitant]
     Indication: INTRAOCULAR LENS IMPLANT
     Dosage: UNK
     Route: 047
     Dates: start: 20150326, end: 20150326
  4. DICLOD [Concomitant]
     Active Substance: DICLOFENAC SODIUM
     Indication: INTRAOCULAR LENS IMPLANT
     Dosage: UNK
     Route: 047
     Dates: start: 20150413, end: 20150418
  5. BENOXIL [Concomitant]
     Active Substance: BENOXINATE HYDROCHLORIDE
     Indication: INTRAOCULAR LENS IMPLANT
     Dosage: UNK
     Route: 047
     Dates: start: 20150413, end: 20150413

REACTIONS (2)
  - Corneal disorder [Recovered/Resolved]
  - Non-infectious endophthalmitis [Recovered/Resolved]

NARRATIVE: CASE EVENT DATE: 20150418
